FAERS Safety Report 5463051-4 (Version None)
Quarter: 2007Q3

REPORT INFORMATION
  Report Type: 
  Country: None (occurrence: None)
  Receive Date: 20070918
  Receipt Date: 20070918
  Transmission Date: 20080115
  Serious: Yes (Life-Threatening, Hospitalization, Disabling, Other)
  Sender: FDA-Public Use
  Company Number: None

PATIENT
  Age: 26 Year
  Sex: Male
  Weight: 137.4399 kg

DRUGS (2)
  1. MULTIVITAMIN [Suspect]
     Indication: WEIGHT DECREASED
     Dosage: 1 TABLET AT BEDTIME PO
     Route: 048
     Dates: start: 20070829, end: 20070908
  2. CR-PICO 200MCG SLIM + TRIM INC; CALVIN SCOTT + CO [Suspect]
     Indication: WEIGHT DECREASED
     Dosage: 1 TABLET IN MORNING PO
     Route: 048
     Dates: start: 20070622, end: 20070908

REACTIONS (6)
  - BONE PAIN [None]
  - CONGESTIVE CARDIOMYOPATHY [None]
  - COUGH [None]
  - MITRAL VALVE INCOMPETENCE [None]
  - NO THERAPEUTIC RESPONSE [None]
  - SPUTUM DISCOLOURED [None]
